FAERS Safety Report 9559818 (Version 1)
Quarter: 2013Q3

REPORT INFORMATION
  Report Type: Spontaneous
  Country: US (occurrence: None)
  Receive Date: 20130906
  Receipt Date: 20130906
  Transmission Date: 20140515
  Serious: Yes (Hospitalization)
  Sender: FDA-Public Use
  Company Number: 163-POMAL-13073672

PATIENT
  Age: 58 Year
  Sex: Male

DRUGS (7)
  1. POMALYST [Suspect]
     Indication: PLASMA CELL MYELOMA
     Route: 048
     Dates: start: 201303
  2. PEPCID (FAMOTIDINE) [Concomitant]
  3. ACYCLOVIR [Concomitant]
  4. ENOXAPARIN [Concomitant]
  5. ASPIRIN (ACETYLSALICYLIC ACID) [Concomitant]
  6. OXYCODONE [Concomitant]
  7. DEXAMETHASONE [Concomitant]

REACTIONS (4)
  - Dyspnoea [None]
  - Haemoglobin decreased [None]
  - Pneumonia [None]
  - Influenza [None]
